FAERS Safety Report 9075129 (Version 1)
Quarter: 2013Q1

REPORT INFORMATION
  Report Type: Spontaneous
  Country: DK (occurrence: DK)
  Receive Date: 20130131
  Receipt Date: 20130131
  Transmission Date: 20140127
  Serious: Yes (Life-Threatening, Hospitalization, Disabling)
  Sender: FDA-Public Use
  Company Number: DK-009507513-1301DNK011908

PATIENT
  Age: 55 Year
  Sex: Male
  Weight: 76 kg

DRUGS (3)
  1. PEGINTRON [Suspect]
     Indication: HEPATITIS C
     Dosage: STYRKE: 100 MICROGRAM/0,5 ML
     Route: 058
     Dates: start: 20120116, end: 20120506
  2. METADON [Concomitant]
     Indication: WITHDRAWAL SYNDROME
     Dosage: STYRKE: 1 MG/ML
     Route: 048
  3. REBETOL [Concomitant]
     Indication: HEPATITIS C
     Route: 048
     Dates: start: 20120116, end: 20120506

REACTIONS (6)
  - Diabetic ketoacidosis [Recovered/Resolved with Sequelae]
  - Type 1 diabetes mellitus [Not Recovered/Not Resolved]
  - Asthenia [Unknown]
  - Coma [Unknown]
  - Memory impairment [Not Recovered/Not Resolved]
  - Cognitive disorder [Not Recovered/Not Resolved]
